FAERS Safety Report 7421058-1 (Version None)
Quarter: 2011Q2

REPORT INFORMATION
  Report Type: 
  Country: None (occurrence: None)
  Receive Date: 20110418
  Receipt Date: 20110412
  Transmission Date: 20111010
  Serious: Yes (Death, Other)
  Sender: FDA-Public Use
  Company Number: JP-SANOFI-AVENTIS-2011SA022557

PATIENT
  Age: 65 Year
  Sex: Female

DRUGS (2)
  1. DOCETAXEL [Suspect]
     Indication: ANGIOSARCOMA
     Route: 042
  2. DOCETAXEL [Suspect]
     Dosage: REDUCED DOSE
     Route: 042

REACTIONS (4)
  - SUDDEN DEATH [None]
  - NEUROPATHY PERIPHERAL [None]
  - NEUTROPENIA [None]
  - OEDEMA PERIPHERAL [None]
